FAERS Safety Report 6060393-9 (Version None)
Quarter: 2009Q1

REPORT INFORMATION
  Report Type: 
  Country: None (occurrence: None)
  Receive Date: 20090127
  Receipt Date: 20090127
  Transmission Date: 20090719
  Serious: Yes (Hospitalization)
  Sender: FDA-Public Use
  Company Number: None

PATIENT
  Age: 58 Year
  Sex: Female
  Weight: 53.9 kg

DRUGS (10)
  1. ABILIFY [Suspect]
     Indication: BIPOLAR DISORDER
     Dosage: 20MG PO QD
     Route: 048
     Dates: start: 20030101
  2. DEPAKOTE [Concomitant]
  3. LIPITOR [Concomitant]
  4. NEXIUM [Concomitant]
  5. HYDROCODONE BITARTRATE [Concomitant]
  6. SUCRALFATE [Concomitant]
  7. AMBIEN ER [Concomitant]
  8. PRILOSEC [Concomitant]
  9. PREMARIN [Concomitant]
  10. FIORINAL [Concomitant]

REACTIONS (8)
  - ASTHENIA [None]
  - BRADYCARDIA [None]
  - CHRONIC OBSTRUCTIVE PULMONARY DISEASE [None]
  - CORONARY ARTERY DISEASE [None]
  - DYSARTHRIA [None]
  - GAIT DISTURBANCE [None]
  - MEDICAL DEVICE COMPLICATION [None]
  - TRANSIENT ISCHAEMIC ATTACK [None]
